FAERS Safety Report 5951195-X (Version None)
Quarter: 2008Q4

REPORT INFORMATION
  Report Type: 
  Country: None (occurrence: None)
  Receive Date: 20081111
  Receipt Date: 20081111
  Transmission Date: 20090506
  Serious: Yes (Other)
  Sender: FDA-Public Use
  Company Number: None

PATIENT
  Age: 30 Year
  Sex: Female
  Weight: 78.9259 kg

DRUGS (1)
  1. LEVAQUIN [Suspect]
     Indication: RESPIRATORY TRACT INFECTION
     Dosage: 1 PILL 750 MG  1 A DAY PO
     Route: 048
     Dates: start: 20081105, end: 20081105

REACTIONS (16)
  - ABNORMAL DREAMS [None]
  - ARTHRALGIA [None]
  - AUTOPHONY [None]
  - DISORIENTATION [None]
  - DIZZINESS [None]
  - EMOTIONAL DISORDER [None]
  - FEELING COLD [None]
  - HEART RATE INCREASED [None]
  - HYPERACUSIS [None]
  - HYPERHIDROSIS [None]
  - INSOMNIA [None]
  - JOINT SWELLING [None]
  - NAUSEA [None]
  - NEURALGIA [None]
  - PARAESTHESIA [None]
  - TINNITUS [None]
